FAERS Safety Report 21862499 (Version 3)
Quarter: 2023Q2

REPORT INFORMATION
  Report Type: Report from Study
  Country: US (occurrence: US)
  Receive Date: 20230114
  Receipt Date: 20230415
  Transmission Date: 20230722
  Serious: No
  Sender: FDA-Public Use
  Company Number: US-ABBVIE-4270183

PATIENT
  Sex: Male

DRUGS (26)
  1. VENCLEXTA [Suspect]
     Active Substance: VENETOCLAX
     Indication: Myelodysplastic syndrome
     Dosage: FORM STRENGTH: 100 MG
     Route: 048
     Dates: start: 20230112
  2. SINEQUAN [Concomitant]
     Active Substance: DOXEPIN HYDROCHLORIDE
     Indication: Product used for unknown indication
     Dosage: FORM STRENGTH: 25 MG BEDTIME
     Route: 048
     Dates: start: 20230103
  3. FLORINEF ACETATE [Concomitant]
     Active Substance: FLUDROCORTISONE ACETATE
     Indication: Product used for unknown indication
     Dosage: STRENGTH 0.1 MG
     Route: 048
     Dates: start: 20221220
  4. MELATONIN [Concomitant]
     Active Substance: MELATONIN
     Indication: Insomnia
     Dosage: 5MG TABLET AT BEDTIME
     Route: 048
     Dates: start: 20221117
  5. ALLEGRA [Concomitant]
     Active Substance: FEXOFENADINE HYDROCHLORIDE
     Indication: Product used for unknown indication
     Route: 048
     Dates: start: 20221122
  6. FLEXERIL [Concomitant]
     Active Substance: CYCLOBENZAPRINE HYDROCHLORIDE
     Indication: Muscle spasms
     Dosage: FORM STRENGTH 10 MG BEDTIME
     Route: 048
     Dates: start: 20220922
  7. VITAMIN D3 [Concomitant]
     Active Substance: CHOLECALCIFEROL
     Indication: Product used for unknown indication
     Dosage: STRENGTH 2.5 MICROGRAM (100UNIT) TABLET TAKE 5000 UNITS
  8. DIPHENHYDRAMINE HYDROCHLORIDE\LIDOCAINE HYDROCHLORIDE\NYSTATIN [Concomitant]
     Active Substance: DIPHENHYDRAMINE HYDROCHLORIDE\LIDOCAINE HYDROCHLORIDE\NYSTATIN
     Indication: Stomatitis
     Dosage: SWISH AND SPIT 5-10 ML EVERY 4 HOURS AS NEEDED FOR
  9. MORPHINE SULFATE [Concomitant]
     Active Substance: MORPHINE SULFATE
     Indication: Pain
     Dosage: 15 MG TABLET TAKE 0.5-1 TABLETS (7.5-15MG TOTAL) BY MOUTH 2 TIMES A DAY
     Route: 048
     Dates: start: 20221122
  10. MORPHINE SULFATE [Concomitant]
     Active Substance: MORPHINE SULFATE
     Indication: Pain
     Dosage: 15 MG TABLET
     Route: 048
     Dates: start: 20220927, end: 2022
  11. SINGULAIR [Concomitant]
     Active Substance: MONTELUKAST SODIUM
     Indication: Product used for unknown indication
     Dosage: 10 MG TABLET AT BEDTIME FOR 10 DAYS
     Route: 048
     Dates: start: 20221216
  12. PEPCID [Concomitant]
     Active Substance: FAMOTIDINE
     Indication: Product used for unknown indication
     Dosage: STRENGTH 20 MG
     Route: 048
     Dates: start: 20221216
  13. TYLENOL [Concomitant]
     Active Substance: ACETAMINOPHEN
     Indication: Pain
     Dosage: 500MG TABLET
     Route: 048
  14. DECADRON [Concomitant]
     Active Substance: DEXAMETHASONE
     Indication: Adrenocortical insufficiency acute
     Dosage: FORM STRENGTH: 4 MILLIGRAM INJECTION
     Dates: start: 20220713
  15. LEVAQUIN [Concomitant]
     Active Substance: LEVOFLOXACIN
     Indication: Product used for unknown indication
     Dosage: FORM STRENGTH: 500 MG BEDTIME
     Route: 048
     Dates: start: 20221114
  16. CORTEF [Concomitant]
     Active Substance: HYDROCORTISONE
     Indication: Product used for unknown indication
     Dosage: STRENGTH 5 MG
     Dates: start: 20221115
  17. SENOKOT-S [Concomitant]
     Active Substance: DOCUSATE SODIUM\SENNOSIDES
     Indication: Product used for unknown indication
     Dosage: 8.6-50MG PER TABLET
     Dates: start: 20221117
  18. ZOFRAN [Concomitant]
     Active Substance: ONDANSETRON HYDROCHLORIDE
     Indication: Nausea
     Dosage: 8MG TABLET
  19. ZOCOR [Concomitant]
     Active Substance: SIMVASTATIN
     Indication: Product used for unknown indication
     Dosage: 40MG TABLET
     Dates: start: 20221216
  20. MIRALAX [Concomitant]
     Active Substance: POLYETHYLENE GLYCOL 3350
     Indication: Product used for unknown indication
     Dosage: 17G/DOSE POWDER/DISSOLVE EACH 17 G IN 240ML 8OZ OF BEVERAGE
     Dates: start: 20221121
  21. NARCAN [Concomitant]
     Active Substance: NALOXONE HYDROCHLORIDE
     Indication: Product used for unknown indication
     Dosage: 4MG/ACTUATION NASAL SPRAY
     Dates: start: 20220214
  22. VFEND [Concomitant]
     Active Substance: VORICONAZOLE
     Indication: Product used for unknown indication
     Dosage: 200MG TABLET
     Dates: start: 20221121
  23. PROTONIX [Concomitant]
     Active Substance: PANTOPRAZOLE SODIUM
     Indication: Product used for unknown indication
     Dosage: 40MG EC TABLET
     Dates: start: 20220923
  24. COMPAZINE [Concomitant]
     Active Substance: PROCHLORPERAZINE MALEATE
     Indication: Nausea
     Dosage: 10MG TABLET
     Dates: start: 20221205
  25. ZOVIRAX [Concomitant]
     Active Substance: ACYCLOVIR
     Indication: Product used for unknown indication
     Route: 048
     Dates: start: 20221121
  26. ELIQUIS [Concomitant]
     Active Substance: APIXABAN
     Indication: Product used for unknown indication
     Route: 048
     Dates: start: 20221204

REACTIONS (2)
  - Cardiac disorder [Unknown]
  - Off label use [Not Recovered/Not Resolved]
